FAERS Safety Report 14890737 (Version 1)
Quarter: 2018Q2

REPORT INFORMATION
  Report Type: Spontaneous
  Country: FR (occurrence: FR)
  Receive Date: 20180514
  Receipt Date: 20180514
  Transmission Date: 20180711
  Serious: Yes (Other)
  Sender: FDA-Public Use
  Company Number: FR-MERCK KGAA-2047700

PATIENT
  Age: 60 Year
  Sex: Female

DRUGS (1)
  1. NOVOTHYROX [Suspect]
     Active Substance: LEVOTHYROXINE SODIUM
     Indication: HYPOTHYROIDISM
     Dates: start: 201705, end: 2017

REACTIONS (23)
  - Cellulitis [None]
  - Myalgia [Recovering/Resolving]
  - Alopecia [None]
  - Malaise [None]
  - Crying [None]
  - Asthenia [None]
  - Impaired work ability [None]
  - Pain in extremity [None]
  - Muscle spasms [None]
  - Sleep disorder [Recovering/Resolving]
  - Social avoidant behaviour [None]
  - Muscle atrophy [None]
  - Fatigue [None]
  - Loss of personal independence in daily activities [None]
  - Feeling abnormal [None]
  - Arthralgia [Recovering/Resolving]
  - Arthralgia [Recovered/Resolved]
  - Paraesthesia [Recovering/Resolving]
  - Disturbance in attention [None]
  - Vertigo [None]
  - Gait disturbance [None]
  - Impaired driving ability [None]
  - Depression [None]

NARRATIVE: CASE EVENT DATE: 2017
